FAERS Safety Report 5291160-1 (Version None)
Quarter: 2007Q2

REPORT INFORMATION
  Report Type: 
  Country: None (occurrence: None)
  Receive Date: 20070409
  Receipt Date: 20070407
  Transmission Date: 20071010
  Serious: Yes (Other)
  Sender: FDA-Public Use
  Company Number: US-GENENTECH-221345

PATIENT
  Sex: Female
  Weight: 102.2 kg

DRUGS (1)
  1. SOMATROPIN [Suspect]
     Indication: PRADER-WILLI SYNDROME
     Dosage: 1.5 MG, UNK
     Route: 058
     Dates: start: 20040118

REACTIONS (1)
  - DIABETES MELLITUS [None]
